FAERS Safety Report 21343942 (Version 1)
Quarter: 2022Q3

REPORT INFORMATION
  Report Type: Spontaneous
  Country: GB (occurrence: GB)
  Receive Date: 20220916
  Receipt Date: 20220916
  Transmission Date: 20221027
  Serious: Yes (Other)
  Sender: FDA-Public Use
  Company Number: GB-CAREFORSONS-GB2022SONSSPN118

PATIENT
  Age: 51 Year
  Sex: Male

DRUGS (1)
  1. FINASTERIDE [Suspect]
     Active Substance: FINASTERIDE
     Indication: Product used for unknown indication
     Dosage: UNIT DOSE : 1 MG
     Route: 065

REACTIONS (1)
  - Rectal haemorrhage [Unknown]
